FAERS Safety Report 5924953-5 (Version None)
Quarter: 2008Q4

REPORT INFORMATION
  Report Type: 
  Country: None (occurrence: None)
  Receive Date: 20081015
  Receipt Date: 20081015
  Transmission Date: 20090506
  Serious: Yes (Hospitalization)
  Sender: FDA-Public Use
  Company Number: None

PATIENT
  Sex: Male
  Weight: 55.3388 kg

DRUGS (3)
  1. ABRAXENE, 100 MILLIGRAMS PER VIAL, ABRAXIS [Suspect]
     Indication: PANCREATIC CARCINOMA
     Dosage: 100 MG/M2 1 WK IV
     Route: 042
     Dates: start: 20080702, end: 20080813
  2. ENALAPRIL MALEATE [Concomitant]
  3. OXYCONTIN [Concomitant]

REACTIONS (3)
  - ABDOMINAL DISTENSION [None]
  - FATIGUE [None]
  - PAIN [None]
